FAERS Safety Report 7979245-X (Version None)
Quarter: 2011Q4

REPORT INFORMATION
  Report Type: 
  Country: None (occurrence: None)
  Receive Date: 20111214
  Receipt Date: 20111214
  Transmission Date: 20120403
  Serious: Yes (Other)
  Sender: FDA-Public Use
  Company Number: None

PATIENT

DRUGS (1)
  1. MIRENA [Suspect]

REACTIONS (12)
  - FEELING ABNORMAL [None]
  - PAIN IN EXTREMITY [None]
  - PAIN [None]
  - MENORRHAGIA [None]
  - ABDOMINAL DISTENSION [None]
  - BACK PAIN [None]
  - FLANK PAIN [None]
  - IRRITABILITY [None]
  - HEADACHE [None]
  - MUSCLE SPASMS [None]
  - DEPRESSION [None]
  - SINUSITIS [None]
